FAERS Safety Report 16606091 (Version 2)
Quarter: 2019Q3

REPORT INFORMATION
  Report Type: Spontaneous
  Country: JP (occurrence: JP)
  Receive Date: 20190721
  Receipt Date: 20190809
  Transmission Date: 20191004
  Serious: No
  Sender: FDA-Public Use
  Company Number: JP-AMGEN-JPNSP2019116432

PATIENT
  Sex: Female

DRUGS (1)
  1. G-LASTA [Suspect]
     Active Substance: PEGFILGRASTIM
     Indication: COLONY STIMULATING FACTOR THERAPY
     Dosage: UNK
     Route: 058

REACTIONS (2)
  - Back pain [Recovered/Resolved]
  - Myalgia [Recovered/Resolved]
